FAERS Safety Report 14355069 (Version 1)
Quarter: 2018Q1

REPORT INFORMATION
  Report Type: Spontaneous
  Country: JP (occurrence: JP)
  Receive Date: 20180105
  Receipt Date: 20180105
  Transmission Date: 20180509
  Serious: Yes (Death, Other)
  Sender: FDA-Public Use
  Company Number: JP-BAYER-2017-249591

PATIENT
  Age: 85 Year
  Sex: Female

DRUGS (1)
  1. CIPROXAN-I.V.300 [Suspect]
     Active Substance: CIPROFLOXACIN
     Dosage: UNK
     Dates: start: 201608, end: 201608

REACTIONS (2)
  - Pneumonia [Fatal]
  - Stevens-Johnson syndrome [Fatal]
